FAERS Safety Report 9344010 (Version 1)
Quarter: 2013Q2

REPORT INFORMATION
  Report Type: Spontaneous
  Country: US (occurrence: US)
  Receive Date: 20130612
  Receipt Date: 20130612
  Transmission Date: 20140414
  Serious: No
  Sender: FDA-Public Use
  Company Number: US-009507513-1305USA014881

PATIENT
  Sex: Male
  Weight: 97.52 kg

DRUGS (8)
  1. VICTRELIS [Suspect]
     Indication: HEPATITIS C
     Dosage: 800 MG, TID (EVERY 7-9 HOURS)
     Route: 048
  2. PEGASYS [Suspect]
  3. RIBAVIRIN [Suspect]
     Dosage: 600 MG, UNK
     Route: 048
  4. TRAMADOL HYDROCHLORIDE [Concomitant]
     Dosage: 200 MG, UNK
     Route: 048
  5. OXYMORPHONE HYDROCHLORIDE [Concomitant]
     Dosage: 20 MG, UNK
     Route: 048
  6. XANAX [Concomitant]
     Dosage: 1 MG, UNK
     Route: 048
  7. TYLENOL [Concomitant]
     Dosage: 325 MG, UNK
     Route: 048
  8. CELEXA [Concomitant]
     Dosage: 10 MG, UNK
     Route: 048

REACTIONS (5)
  - White blood cell count decreased [Unknown]
  - Haemoglobin decreased [Unknown]
  - Headache [Unknown]
  - Irritability [Unknown]
  - Mood altered [Unknown]
